FAERS Safety Report 8288896-7 (Version None)
Quarter: 2012Q2

REPORT INFORMATION
  Report Type: 
  Country: None (occurrence: None)
  Receive Date: 20120412
  Receipt Date: 20120329
  Transmission Date: 20120825
  Serious: Yes (Hospitalization)
  Sender: FDA-Public Use
  Company Number: JP-2011-12935

PATIENT
  Age: 70 Year
  Sex: Male
  Weight: 63 kg

DRUGS (17)
  1. MICARDIS [Concomitant]
  2. ZETIA [Concomitant]
  3. LENDORM [Concomitant]
  4. MEXITIL [Concomitant]
  5. MAGMITT (MAGNESIUM OXIDE) [Concomitant]
  6. PLETAL [Suspect]
     Indication: PERIPHERAL ARTERIAL OCCLUSIVE DISEASE
     Dosage: 50 MG MILLIGRAM(S), BID, ORAL, 200 MG MILLIGRAM(S0, DAILY DOSE, ORAL
     Route: 048
     Dates: start: 20110721, end: 20110817
  7. PLETAL [Suspect]
     Indication: PERIPHERAL ARTERIAL OCCLUSIVE DISEASE
     Dosage: 50 MG MILLIGRAM(S), BID, ORAL, 200 MG MILLIGRAM(S0, DAILY DOSE, ORAL
     Route: 048
     Dates: start: 20110818, end: 20110831
  8. ANPLAG (SARPOGRELATE HYDROCHLORIDE) [Concomitant]
  9. ADALAT [Concomitant]
  10. DOXAZOSIN MESYLATE [Concomitant]
  11. JANUVIA [Concomitant]
  12. PROCYLIN (BERAPROST SODIUM) [Concomitant]
  13. NOVOLOG [Concomitant]
  14. LASIX [Suspect]
     Indication: CARDIAC FAILURE CONGESTIVE
     Dosage: 60 MG MILLIGRAM(S), QD, ORAL, 40 MG MILLIGRAM(S), DAILY DOSE, ORAL
     Route: 048
     Dates: start: 20110121, end: 20110905
  15. LASIX [Suspect]
     Indication: CARDIAC FAILURE CONGESTIVE
     Dosage: 60 MG MILLIGRAM(S), QD, ORAL, 40 MG MILLIGRAM(S), DAILY DOSE, ORAL
     Route: 048
     Dates: start: 20110906, end: 20110917
  16. TANATRIL (IMIDAPRIL HYDROCHLORIDE) [Concomitant]
  17. FAMOTIDINE [Concomitant]

REACTIONS (2)
  - RENAL FAILURE ACUTE [None]
  - DEHYDRATION [None]
